FAERS Safety Report 20256269 (Version 1)
Quarter: 2021Q4

REPORT INFORMATION
  Report Type: Spontaneous
  Country: US (occurrence: US)
  Receive Date: 20211230
  Receipt Date: 20211230
  Transmission Date: 20220304
  Serious: Yes (Other)
  Sender: FDA-Public Use
  Company Number: US-PFIZER INC-202101807626

PATIENT
  Age: 55 Year
  Sex: Female
  Weight: 56.7 kg

DRUGS (1)
  1. DILANTIN [Suspect]
     Active Substance: PHENYTOIN
     Indication: Seizure
     Dosage: 100 MG, 3X/DAY (100 MG THREE TIMES A DAY AT NIGHT)
     Dates: end: 2018

REACTIONS (4)
  - Gingival disorder [Not Recovered/Not Resolved]
  - Gingival swelling [Not Recovered/Not Resolved]
  - Gingival bleeding [Unknown]
  - Weight decreased [Unknown]

NARRATIVE: CASE EVENT DATE: 20180101
